FAERS Safety Report 23812312 (Version 2)
Quarter: 2025Q2

REPORT INFORMATION
  Report Type: Spontaneous
  Country: US (occurrence: US)
  Receive Date: 20240503
  Receipt Date: 20250514
  Transmission Date: 20250716
  Serious: No
  Sender: UCB
  Company Number: US-UCBSA-2023036831

PATIENT
  Sex: Female

DRUGS (1)
  1. CIMZIA [Suspect]
     Active Substance: CERTOLIZUMAB PEGOL
     Indication: Psoriatic arthropathy
     Dosage: 200 MILLIGRAM, EV 2 WEEKS(QOW)
     Route: 058

REACTIONS (3)
  - Fatigue [Unknown]
  - Arthralgia [Unknown]
  - Product dose omission issue [Unknown]
